FAERS Safety Report 15694203 (Version 1)
Quarter: 2018Q4

REPORT INFORMATION
  Report Type: Report from Study
  Country: US (occurrence: US)
  Receive Date: 20181206
  Receipt Date: 20181206
  Transmission Date: 20190205
  Serious: Yes (Death)
  Sender: FDA-Public Use
  Company Number: PHHO2018US012812

PATIENT
  Age: 78 Year
  Sex: Female

DRUGS (2)
  1. RYDAPT [Suspect]
     Active Substance: MIDOSTAURIN
     Indication: MYELODYSPLASTIC SYNDROME
     Dosage: 50 MG, BID (DAY 8 TO 21)
     Route: 048
     Dates: start: 20180702, end: 20181007
  2. COMPARATOR AZACITIDINE [Suspect]
     Active Substance: AZACITIDINE
     Indication: MYELODYSPLASTIC SYNDROME
     Dosage: 75 MG/M2, QD (SQ OR IV ON DAYS 1-7)
     Route: 065
     Dates: start: 20180702, end: 20180930

REACTIONS (1)
  - Respiratory failure [Fatal]
